FAERS Safety Report 17521686 (Version 1)
Quarter: 2020Q1

REPORT INFORMATION
  Report Type: Spontaneous
  Country: US (occurrence: US)
  Receive Date: 20200310
  Receipt Date: 20200310
  Transmission Date: 20200409
  Serious: No
  Sender: FDA-Public Use
  Company Number: US-FARMAPROD-201910-1621

PATIENT
  Sex: Male
  Weight: 108.96 kg

DRUGS (4)
  1. GENTAMICIN. [Concomitant]
     Active Substance: GENTAMICIN
     Indication: ULCERATIVE KERATITIS
     Dates: start: 201902
  2. OXERVATE [Suspect]
     Active Substance: CENEGERMIN-BKBJ
     Indication: ULCERATIVE KERATITIS
     Route: 047
     Dates: start: 20191008
  3. BESIVANCE [Concomitant]
     Active Substance: BESIFLOXACIN
     Indication: ULCERATIVE KERATITIS
     Dates: start: 201902
  4. VORICONAZOLE. [Concomitant]
     Active Substance: VORICONAZOLE
     Indication: ULCERATIVE KERATITIS
     Dates: start: 201902

REACTIONS (5)
  - Eye pain [Recovering/Resolving]
  - Eye swelling [Not Recovered/Not Resolved]
  - Drug ineffective [Unknown]
  - Eye irritation [Not Recovered/Not Resolved]
  - Eye discharge [Not Recovered/Not Resolved]
